FAERS Safety Report 17867198 (Version 1)
Quarter: 2020Q2

REPORT INFORMATION
  Report Type: Spontaneous
  Country: US (occurrence: US)
  Receive Date: 20200605
  Receipt Date: 20200605
  Transmission Date: 20200714
  Serious: Yes (Other)
  Sender: FDA-Public Use
  Company Number: US-AMGEN-USASP2020087235

PATIENT
  Sex: Female

DRUGS (1)
  1. PROLIA [Suspect]
     Active Substance: DENOSUMAB
     Indication: OSTEOPOROSIS
     Dosage: 60 MILLIGRAM, Q6MO
     Route: 065
     Dates: start: 2012

REACTIONS (5)
  - Fibromyalgia [Unknown]
  - Immunodeficiency [Unknown]
  - Sinusitis [Unknown]
  - Barrett^s oesophagus [Unknown]
  - Urinary tract infection [Recovered/Resolved]
